FAERS Safety Report 5818523-7 (Version None)
Quarter: 2008Q3

REPORT INFORMATION
  Report Type: 
  Country: None (occurrence: None)
  Receive Date: 20080717
  Receipt Date: 20080703
  Transmission Date: 20090109
  Serious: No
  Sender: FDA-Public Use
  Company Number: US024015

PATIENT
  Sex: Male

DRUGS (5)
  1. FENTORA [Suspect]
     Indication: INTERVERTEBRAL DISC PROTRUSION
     Dosage: BUCCAL
     Route: 002
  2. FENTORA [Suspect]
     Indication: NEUROPATHY PERIPHERAL
     Dosage: BUCCAL
     Route: 002
  3. DURAGESIC-100 [Concomitant]
  4. KADIAN [Concomitant]
  5. MORPHINE [Concomitant]

REACTIONS (1)
  - CIRCUMSTANCE OR INFORMATION CAPABLE OF LEADING TO MEDICATION ERROR [None]
